FAERS Safety Report 6689361-0 (Version None)
Quarter: 2010Q2

REPORT INFORMATION
  Report Type: 
  Country: None (occurrence: None)
  Receive Date: 20100419
  Receipt Date: 20100419
  Transmission Date: 20101027
  Serious: Yes (Life-Threatening, Other)
  Sender: FDA-Public Use
  Company Number: None

PATIENT
  Sex: Male
  Weight: 76.4 kg

DRUGS (6)
  1. TRELSTAR LA [Suspect]
     Indication: PROSTATE CANCER
     Dosage: INJECTION EVERY 12 WEEKS
     Dates: start: 20090521
  2. TRELSTAR LA [Suspect]
     Indication: PROSTATE CANCER
     Dosage: INJECTION EVERY 12 WEEKS
     Dates: start: 20090821
  3. IMRT [Concomitant]
  4. NEXIUM [Concomitant]
  5. ALTACE [Concomitant]
  6. LIPITOR [Concomitant]

REACTIONS (2)
  - SEMINOMA [None]
  - TESTIS CANCER [None]
